FAERS Safety Report 5080535-1 (Version None)
Quarter: 2006Q3

REPORT INFORMATION
  Report Type: 
  Country: None (occurrence: None)
  Receive Date: 20060720
  Receipt Date: 20050705
  Transmission Date: 20061208
  Serious: Yes (Hospitalization, Other)
  Sender: FDA-Public Use
  Company Number: 2004231205US

PATIENT
  Age: 38 Year
  Sex: Male

DRUGS (3)
  1. CELEBREX [Suspect]
     Indication: ARTHRITIS
     Dosage: (200 MG), ORAL
     Route: 048
     Dates: start: 19990614
  2. ALLOPURINOL [Concomitant]
  3. ASPIRIN [Concomitant]

REACTIONS (1)
  - ACUTE MYOCARDIAL INFARCTION [None]
